FAERS Safety Report 7549152-5 (Version None)
Quarter: 2011Q2

REPORT INFORMATION
  Report Type: 
  Country: None (occurrence: None)
  Receive Date: 20110615
  Receipt Date: 20110601
  Transmission Date: 20111010
  Serious: Yes (Other)
  Sender: FDA-Public Use
  Company Number: PHHY2011BR48626

PATIENT
  Sex: Male

DRUGS (1)
  1. DIOVAN HCT [Suspect]
     Indication: HYPERTENSION
     Dosage: VALSARTAN 320MG AND HYDROCHLOROTIAZIDE 12.5MG, ONE TABLET DAILY
     Route: 048

REACTIONS (6)
  - FACE INJURY [None]
  - ERYTHEMA [None]
  - SYNCOPE [None]
  - FALL [None]
  - HAEMORRHAGE [None]
  - HYPERTENSION [None]
